FAERS Safety Report 13118488 (Version 4)
Quarter: 2017Q1

REPORT INFORMATION
  Report Type: Report from Study
  Country: US (occurrence: US)
  Receive Date: 20170116
  Receipt Date: 20170323
  Transmission Date: 20170428
  Serious: Yes (Hospitalization, Other)
  Sender: FDA-Public Use
  Company Number: US-GILEAD-2017-0252720

PATIENT
  Age: 31 Year
  Sex: Female
  Weight: 85 kg

DRUGS (17)
  1. AMBRISENTAN [Suspect]
     Active Substance: AMBRISENTAN
     Indication: PULMONARY ARTERIAL HYPERTENSION
     Dosage: 10 MG, QD
     Route: 048
     Dates: start: 20090901
  2. CALCIUM CARBONATE. [Concomitant]
     Active Substance: CALCIUM CARBONATE
  3. COUMADIN [Concomitant]
     Active Substance: WARFARIN SODIUM
  4. PEPCID                             /00305201/ [Concomitant]
     Active Substance: ALUMINUM HYDROXIDE\MAGNESIUM CARBONATE
  5. FUROSEMIDE. [Concomitant]
     Active Substance: FUROSEMIDE
  6. HYDROCORTISONE. [Concomitant]
     Active Substance: HYDROCORTISONE
  7. ORENITRAM [Concomitant]
     Active Substance: TREPROSTINIL
  8. POTASSIUM CHLORIDE. [Concomitant]
     Active Substance: POTASSIUM CHLORIDE
  9. REMODULIN [Concomitant]
     Active Substance: TREPROSTINIL
  10. FLUTICASONE. [Concomitant]
     Active Substance: FLUTICASONE
  11. TUMS                               /00193601/ [Concomitant]
     Active Substance: CALCIUM CARBONATE\MAGNESIUM CARBONATE\MAGNESIUM TRISILICATE
  12. WARFARIN [Concomitant]
     Active Substance: WARFARIN
  13. FAMOTIDINE. [Concomitant]
     Active Substance: FAMOTIDINE
  14. K-TAB [Concomitant]
     Active Substance: POTASSIUM CHLORIDE
  15. SILDENAFIL. [Concomitant]
     Active Substance: SILDENAFIL
  16. ZYVOX [Concomitant]
     Active Substance: LINEZOLID
  17. LASIX [Concomitant]
     Active Substance: FUROSEMIDE

REACTIONS (6)
  - Leukocytosis [Recovered/Resolved]
  - Pyrexia [Recovered/Resolved]
  - Device related infection [Not Recovered/Not Resolved]
  - Catheter site pain [Recovered/Resolved]
  - Catheter placement [Not Recovered/Not Resolved]
  - Staphylococcal sepsis [Not Recovered/Not Resolved]

NARRATIVE: CASE EVENT DATE: 20161227
